FAERS Safety Report 6656827-9 (Version None)
Quarter: 2010Q1

REPORT INFORMATION
  Report Type: 
  Country: None (occurrence: None)
  Receive Date: 20100325
  Receipt Date: 20100310
  Transmission Date: 20100710
  Serious: Yes (Hospitalization)
  Sender: FDA-Public Use
  Company Number: LIT-10-0013-W

PATIENT
  Age: 32 Year
  Sex: Male

DRUGS (1)
  1. ZOLPIDEM TARTRATE [Suspect]
     Indication: INSOMNIA
     Dosage: 10MG PRN/ 20MG/ 40MG 047

REACTIONS (7)
  - AGITATION [None]
  - BIPOLAR I DISORDER [None]
  - DEPRESSION [None]
  - HALLUCINATION, AUDITORY [None]
  - INSOMNIA [None]
  - INTENTIONAL SELF-INJURY [None]
  - OVERDOSE [None]
